FAERS Safety Report 18049153 (Version 1)
Quarter: 2020Q3

REPORT INFORMATION
  Report Type: Spontaneous
  Country: US (occurrence: US)
  Receive Date: 20200721
  Receipt Date: 20200721
  Transmission Date: 20201103
  Serious: No
  Sender: FDA-Public Use
  Company Number: US-PFIZER INC-2020274968

PATIENT
  Age: 67 Year
  Sex: Male
  Weight: 102.51 kg

DRUGS (2)
  1. LATANOPROST. [Suspect]
     Active Substance: LATANOPROST
     Indication: OPEN ANGLE GLAUCOMA
     Dosage: 2 DROP, 1X/DAY (1 DROP EACH EYE NIGHTLY)
     Dates: start: 20200714
  2. LATANOPROST. [Suspect]
     Active Substance: LATANOPROST
     Dosage: 2 DROP, 1X/DAY (1 DROP EACH EYE NIGHTLY)
     Dates: start: 20200714

REACTIONS (2)
  - Product dose omission issue [Unknown]
  - Visual impairment [Unknown]

NARRATIVE: CASE EVENT DATE: 20200715
